FAERS Safety Report 24268553 (Version 1)
Quarter: 2024Q3

REPORT INFORMATION
  Report Type: Spontaneous
  Country: JP (occurrence: JP)
  Receive Date: 20240830
  Receipt Date: 20240830
  Transmission Date: 20241017
  Serious: Yes (Death, Other)
  Sender: AMGEN
  Company Number: JP-TAKEDA-2024TJP012612

PATIENT
  Age: 5 Decade
  Sex: Female

DRUGS (2)
  1. VECTIBIX [Suspect]
     Active Substance: PANITUMUMAB
     Indication: Colon cancer
     Dosage: 6 MILLIGRAM/KILOGRAM, Q2WEEKS
     Route: 042
     Dates: start: 20240102
  2. VECTIBIX [Suspect]
     Active Substance: PANITUMUMAB
     Dosage: UNK
     Route: 042

REACTIONS (2)
  - Colon cancer [Fatal]
  - Skin disorder [Unknown]

NARRATIVE: CASE EVENT DATE: 20240416
